FAERS Safety Report 9540413 (Version 2)
Quarter: 2013Q4

REPORT INFORMATION
  Report Type: Spontaneous
  Country: US (occurrence: US)
  Receive Date: 20130920
  Receipt Date: 20131015
  Transmission Date: 20140711
  Serious: Yes (Hospitalization)
  Sender: FDA-Public Use
  Company Number: US-GLAXOSMITHKLINE-A1042295A

PATIENT
  Age: 75 Year
  Sex: Female

DRUGS (3)
  1. STEROID [Suspect]
     Indication: PRODUCT USED FOR UNKNOWN INDICATION
     Route: 065
  2. REVATIO [Concomitant]
  3. FLOLAN [Suspect]
     Indication: COR PULMONALE CHRONIC
     Dosage: 36.83NGKM CONTINUOUS
     Route: 042
     Dates: start: 20071222

REACTIONS (3)
  - Hospitalisation [Recovering/Resolving]
  - Mental status changes [Recovering/Resolving]
  - Substance-induced psychotic disorder [Recovering/Resolving]
